FAERS Safety Report 6994821-9 (Version None)
Quarter: 2010Q3

REPORT INFORMATION
  Report Type: 
  Country: None (occurrence: None)
  Receive Date: 20100917
  Receipt Date: 20090609
  Transmission Date: 20110219
  Serious: Yes (Other)
  Sender: FDA-Public Use
  Company Number: HQWYE331713JAN06

PATIENT
  Sex: Female

DRUGS (4)
  1. PREMPHASE 14/14 [Suspect]
  2. CENESTIN [Suspect]
  3. PROMETRIUM [Suspect]
  4. PROVERA [Suspect]

REACTIONS (2)
  - BREAST CANCER [None]
  - OVARIAN CANCER [None]
